FAERS Safety Report 6011678-3 (Version None)
Quarter: 2008Q4

REPORT INFORMATION
  Report Type: 
  Country: None (occurrence: None)
  Receive Date: 20081218
  Receipt Date: 19880726
  Transmission Date: 20090506
  Serious: Yes (Death)
  Sender: FDA-Public Use
  Company Number: DE-ROCHE-880300007001

PATIENT
  Sex: Male
  Weight: 75 kg

DRUGS (8)
  1. INTERFERON ALFA-2A [Suspect]
     Indication: ASYMPTOMATIC HIV INFECTION
     Dosage: REPORTED AS 3 MU, 3 TIMES A WEEK
     Route: 058
     Dates: start: 19870512, end: 19870914
  2. INTERFERON ALFA-2A [Suspect]
     Route: 058
     Dates: start: 19871217, end: 19880704
  3. RETROVIR [Concomitant]
     Route: 048
     Dates: start: 19871217, end: 19880104
  4. RETROVIR [Concomitant]
     Route: 048
     Dates: start: 19880104, end: 19880302
  5. RETROVIR [Concomitant]
     Route: 048
     Dates: start: 19880302, end: 19880401
  6. RETROVIR [Concomitant]
     Route: 048
     Dates: start: 19880501, end: 19880601
  7. NIZORAL [Concomitant]
     Indication: CANDIDIASIS
     Route: 048
     Dates: start: 19870512, end: 19880704
  8. IMMUNE GLOBULIN INTRAVENOUS (HUMAN) [Concomitant]
     Dosage: FREQUENCY REPORTED AS EVERY 3 WEEKS
     Route: 042
     Dates: start: 19870914, end: 19881210

REACTIONS (1)
  - DISEASE PROGRESSION [None]
